FAERS Safety Report 8842170 (Version 31)
Quarter: 2016Q1

REPORT INFORMATION
  Report Type: Report from Study
  Country: CA (occurrence: CA)
  Receive Date: 20121016
  Receipt Date: 20160304
  Transmission Date: 20160526
  Serious: Yes (Death, Hospitalization, Other)
  Sender: FDA-Public Use
  Company Number: PHHY2012CA083946

PATIENT
  Age: 68 Year
  Sex: Female

DRUGS (12)
  1. SANDOSTATIN LAR DEPOT [Suspect]
     Active Substance: OCTREOTIDE ACETATE
     Indication: NEUROENDOCRINE TUMOUR
     Dosage: 40 MG, QMO (EVERY 4 WEEKS)
     Route: 030
     Dates: start: 20120920
  2. SANDOSTATIN LAR DEPOT [Suspect]
     Active Substance: OCTREOTIDE ACETATE
     Dosage: 40 MG, QMO (EVERY 4 WEEKS)
     Route: 030
     Dates: start: 20130816
  3. OMEGA 3 [Concomitant]
     Active Substance: OMEGA-3 FATTY ACIDS
     Indication: PRODUCT USED FOR UNKNOWN INDICATION
     Dosage: IN THE AFTERNOON
     Route: 065
  4. SANDOSTATIN LAR DEPOT [Suspect]
     Active Substance: OCTREOTIDE ACETATE
     Indication: METASTASES TO LIVER
     Dosage: 20 MG, QMO (EVERY 4 WEEKS)
     Route: 030
     Dates: start: 20121020
  5. SANDOSTATIN LAR DEPOT [Suspect]
     Active Substance: OCTREOTIDE ACETATE
     Dosage: 30 MG, QMO (EVERY 4 WEEKS)
     Route: 030
  6. MONOCOR [Concomitant]
     Active Substance: BISOPROLOL FUMARATE
     Indication: PRODUCT USED FOR UNKNOWN INDICATION
     Dosage: UNK
     Route: 065
  7. XGEVA [Concomitant]
     Active Substance: DENOSUMAB
     Indication: BONE DISORDER
     Dosage: 1 MG, QMO (EVERY 4 WEEKS)
     Route: 058
     Dates: start: 201410
  8. SANDOSTATIN [Suspect]
     Active Substance: OCTREOTIDE ACETATE
     Indication: METASTASES TO LIVER
     Dosage: 50 UG, TID
     Route: 058
     Dates: start: 20130214, end: 20130302
  9. SANDOSTATIN LAR DEPOT [Suspect]
     Active Substance: OCTREOTIDE ACETATE
     Dosage: 40 MG, QMO (EVERY 4 WEEKS)
     Route: 030
  10. SANDOSTATIN [Suspect]
     Active Substance: OCTREOTIDE ACETATE
     Indication: NEUROENDOCRINE TUMOUR
     Dosage: 50 UG, TID
     Route: 058
     Dates: start: 20120920, end: 20120930
  11. SANDOSTATIN LAR DEPOT [Suspect]
     Active Substance: OCTREOTIDE ACETATE
     Dosage: 30 MG, QMO (EVERY 4 WEEKS)
     Route: 030
  12. SANDOSTATIN LAR DEPOT [Suspect]
     Active Substance: OCTREOTIDE ACETATE
     Dosage: 40 MG, QMO (EVERY 4 WEEKS)
     Route: 030

REACTIONS (37)
  - Cancer pain [Recovering/Resolving]
  - Nerve compression [Unknown]
  - Erythema [Recovered/Resolved]
  - Depressed mood [Unknown]
  - Abdominal distension [Unknown]
  - Vomiting [Unknown]
  - Drug intolerance [Unknown]
  - Decubitus ulcer [Unknown]
  - Bronchitis [Unknown]
  - Dyspnoea [Unknown]
  - Fall [Unknown]
  - Joint injury [Unknown]
  - Anaemia [Unknown]
  - Peripheral swelling [Unknown]
  - Malaise [Unknown]
  - Mobility decreased [Unknown]
  - Cough [Recovering/Resolving]
  - Metastases to oesophagus [Unknown]
  - Rash papular [Unknown]
  - Injection site pain [Unknown]
  - Carcinoid crisis [Recovering/Resolving]
  - Intestinal obstruction [Unknown]
  - Blood pressure systolic increased [Unknown]
  - Rash erythematous [Unknown]
  - Oedema [Recovering/Resolving]
  - Blood pressure systolic decreased [Unknown]
  - Crepitations [Unknown]
  - Sensory disturbance [Unknown]
  - Swelling [Unknown]
  - Diarrhoea [Not Recovered/Not Resolved]
  - Heart rate increased [Unknown]
  - Death [Fatal]
  - Blood pressure diastolic decreased [Unknown]
  - Balance disorder [Unknown]
  - Asthenia [Unknown]
  - Wound [Recovered/Resolved]
  - Fatigue [Unknown]

NARRATIVE: CASE EVENT DATE: 20120921
